FAERS Safety Report 24061626 (Version 1)
Quarter: 2024Q3

REPORT INFORMATION
  Report Type: Report from Study
  Country: CA (occurrence: CA)
  Receive Date: 20240708
  Receipt Date: 20240708
  Transmission Date: 20241016
  Serious: Yes (Hospitalization, Other)
  Sender: TAKEDA
  Company Number: CA-TAKEDA-2023TUS124004

PATIENT
  Age: 76 Year
  Sex: Male

DRUGS (22)
  1. IXAZOMIB [Suspect]
     Active Substance: IXAZOMIB
     Indication: Amyloidosis
     Dosage: 4 MILLIGRAM
     Route: 048
     Dates: start: 20230316
  2. DEXAMETHASONE [Suspect]
     Active Substance: DEXAMETHASONE
     Indication: Amyloidosis
     Dosage: UNK
     Route: 065
     Dates: start: 202303, end: 202312
  3. POMALYST [Suspect]
     Active Substance: POMALIDOMIDE
     Indication: Amyloidosis
     Dosage: UNK
     Route: 065
     Dates: start: 202303
  4. Pom [Concomitant]
     Dosage: UNK
     Route: 065
  5. ASPIRIN [Concomitant]
     Active Substance: ASPIRIN
     Dosage: UNK
     Route: 065
  6. DAPAGLIFLOZIN [Concomitant]
     Active Substance: DAPAGLIFLOZIN
     Dosage: UNK
     Route: 065
  7. DILTIAZEM [Concomitant]
     Active Substance: DILTIAZEM
     Dosage: UNK
     Route: 065
  8. ACYCLOVIR [Concomitant]
     Active Substance: ACYCLOVIR
     Dosage: UNK
     Route: 065
  9. FUROSEMIDE [Concomitant]
     Active Substance: FUROSEMIDE
     Dosage: UNK
     Route: 065
  10. GLICLAZIDE [Concomitant]
     Active Substance: GLICLAZIDE
     Dosage: UNK
     Route: 065
  11. IRBESARTAN [Concomitant]
     Active Substance: IRBESARTAN
     Dosage: UNK
     Route: 065
  12. TAMSULOSIN [Concomitant]
     Active Substance: TAMSULOSIN
     Dosage: UNK
     Route: 065
  13. FINASTERIDE [Concomitant]
     Active Substance: FINASTERIDE
     Dosage: UNK
     Route: 065
  14. ROSUVASTATIN [Concomitant]
     Active Substance: ROSUVASTATIN
     Dosage: UNK
     Route: 065
  15. LOPROX [Concomitant]
     Active Substance: CICLOPIROX\CICLOPIROX OLAMINE
     Dosage: UNK
     Route: 065
  16. LORAZEPAM [Concomitant]
     Active Substance: LORAZEPAM
     Dosage: UNK
     Route: 065
  17. REPAGLINIDE [Concomitant]
     Active Substance: REPAGLINIDE
     Dosage: UNK
     Route: 065
  18. PANTOPRAZOLE [Concomitant]
     Active Substance: PANTOPRAZOLE
     Dosage: UNK
     Route: 065
  19. EPREX [Concomitant]
     Active Substance: ERYTHROPOIETIN
     Dosage: UNK
     Route: 065
  20. BETADERM [Concomitant]
     Active Substance: BETAMETHASONE VALERATE
     Dosage: UNK
     Route: 065
  21. VITAMIN D [Concomitant]
     Active Substance: VITAMIN D NOS
     Dosage: UNK
     Route: 065
  22. VITAMIN B12 [Concomitant]
     Active Substance: CYANOCOBALAMIN
     Dosage: UNK
     Route: 065

REACTIONS (3)
  - COVID-19 [Recovered/Resolved]
  - Product use in unapproved indication [Unknown]
  - Product use issue [Unknown]

NARRATIVE: CASE EVENT DATE: 20240618
